FAERS Safety Report 8115527-9 (Version None)
Quarter: 2012Q1

REPORT INFORMATION
  Report Type: 
  Country: None (occurrence: None)
  Receive Date: 20120206
  Receipt Date: 20120125
  Transmission Date: 20120608
  Serious: Yes (Hospitalization)
  Sender: FDA-Public Use
  Company Number: US-ELI_LILLY_AND_COMPANY-US201202000218

PATIENT
  Sex: Female

DRUGS (16)
  1. TUMS                               /00751519/ [Concomitant]
     Dosage: 500 MG, PRN
     Route: 048
  2. EXTRA STRENGTH TYLENOL [Concomitant]
     Dosage: 500 MG, PRN
     Route: 048
  3. POTASSIUM CHLORIDE [Concomitant]
     Dosage: 20 MEQ, BID
     Route: 048
  4. COUMADIN [Concomitant]
     Dosage: 5 MG, PRN
  5. LASIX [Concomitant]
     Dosage: 40 MG, BID
     Route: 048
  6. AZOPT [Concomitant]
     Dosage: UNK UNK, QD
     Route: 047
  7. ADCIRCA [Suspect]
     Dosage: 20 MG, UNK
     Dates: start: 20111111, end: 20111114
  8. ALBUTEROL [Concomitant]
     Dosage: 90 UG, PRN
  9. PROAIR HFA [Concomitant]
     Dosage: 90 UG, UNK
     Route: 055
  10. LANOXIN [Concomitant]
     Dosage: 250 UG, QD
     Route: 048
  11. KLOR-CON [Concomitant]
     Dosage: 20 MEQ, QD
     Route: 048
  12. ADCIRCA [Suspect]
     Dosage: 20 MG, UNK
     Dates: start: 20111121, end: 20111128
  13. ADCIRCA [Suspect]
     Dosage: 40 MG, EACH MORNING
     Route: 048
     Dates: start: 20111129, end: 20111204
  14. CARDIZEM CD [Concomitant]
     Dosage: 180 MG, QD
     Route: 048
  15. FLOVENT HFA [Concomitant]
     Dosage: 220 UG, BID
     Route: 055
  16. IMDUR [Concomitant]
     Dosage: 30 MG, QD
     Route: 048

REACTIONS (3)
  - HOSPITALISATION [None]
  - BACK PAIN [None]
  - ARTHRALGIA [None]
